FAERS Safety Report 24690948 (Version 2)
Quarter: 2025Q2

REPORT INFORMATION
  Report Type: Spontaneous
  Country: US (occurrence: US)
  Receive Date: 20241203
  Receipt Date: 20250604
  Transmission Date: 20250716
  Serious: No
  Sender: NOVEN
  Company Number: US-NOVEN PHARMACEUTICALS, INC.-2024-NOV-US000957

PATIENT
  Sex: Female
  Weight: 73.243 kg

DRUGS (1)
  1. ESTRADIOL [Suspect]
     Active Substance: ESTRADIOL
     Indication: Menopause
     Route: 062

REACTIONS (4)
  - Product ineffective [Unknown]
  - Product dose omission in error [Recovered/Resolved]
  - Device issue [Recovered/Resolved]
  - Product adhesion issue [Recovered/Resolved]
